FAERS Safety Report 13543040 (Version 3)
Quarter: 2017Q2

REPORT INFORMATION
  Report Type: Report from Study
  Country: US (occurrence: US)
  Receive Date: 20170513
  Receipt Date: 20170526
  Transmission Date: 20170830
  Serious: Yes (Other)
  Sender: FDA-Public Use
  Company Number: PHEH2017US014270

PATIENT
  Sex: Female

DRUGS (1)
  1. GLEEVEC [Suspect]
     Active Substance: IMATINIB MESYLATE
     Indication: CHRONIC MYELOID LEUKAEMIA
     Dosage: UNK
     Route: 065

REACTIONS (10)
  - Mass [Unknown]
  - Haemoglobin decreased [Unknown]
  - Fatigue [Unknown]
  - Muscle spasms [Unknown]
  - Oedema [Unknown]
  - Drug ineffective [Unknown]
  - Eye haemorrhage [Unknown]
  - Eye swelling [Unknown]
  - Diarrhoea [Unknown]
  - Blood count abnormal [Unknown]
